FAERS Safety Report 4705759-1 (Version None)
Quarter: 2005Q3

REPORT INFORMATION
  Report Type: 
  Country: None (occurrence: None)
  Receive Date: 20050701
  Receipt Date: 20050526
  Transmission Date: 20060218
  Serious: Yes (Hospitalization)
  Sender: FDA-Public Use
  Company Number: US-MERCK-0505USA03120

PATIENT
  Age: 47 Year
  Sex: Female
  Weight: 93 kg

DRUGS (2)
  1. VICODIN [Suspect]
     Route: 065
     Dates: start: 20041125
  2. VIOXX [Suspect]
     Route: 048

REACTIONS (8)
  - BACK PAIN [None]
  - DEPRESSION [None]
  - FALL [None]
  - FATIGUE [None]
  - GASTRITIS HAEMORRHAGIC [None]
  - GASTROOESOPHAGEAL REFLUX DISEASE [None]
  - OESOPHAGEAL ULCER [None]
  - UPPER GASTROINTESTINAL HAEMORRHAGE [None]
